FAERS Safety Report 7916969-4 (Version None)
Quarter: 2011Q4

REPORT INFORMATION
  Report Type: 
  Country: None (occurrence: None)
  Receive Date: 20111116
  Receipt Date: 20111116
  Transmission Date: 20120403
  Serious: Yes (Life-Threatening, Hospitalization, Other)
  Sender: FDA-Public Use
  Company Number: None

PATIENT
  Age: 58 Year
  Sex: Female
  Weight: 79.378 kg

DRUGS (2)
  1. HUMIRA [Suspect]
  2. REMICADE [Concomitant]

REACTIONS (1)
  - BREAST CANCER [None]
